FAERS Safety Report 6236687-0 (Version None)
Quarter: 2009Q2

REPORT INFORMATION
  Report Type: 
  Country: None (occurrence: None)
  Receive Date: 20090619
  Receipt Date: 20090220
  Transmission Date: 20091009
  Serious: No
  Sender: FDA-Public Use
  Company Number: US-ASTRAZENECA-2009UW04795

PATIENT
  Age: 82 Year
  Sex: Female
  Weight: 63.5 kg

DRUGS (4)
  1. ATACAND [Suspect]
     Indication: HYPERTENSION
     Route: 048
     Dates: start: 20090206, end: 20090219
  2. ATACAND [Suspect]
     Route: 048
  3. PLAVIX [Concomitant]
  4. ASPIRIN [Concomitant]

REACTIONS (3)
  - BLOOD PRESSURE INCREASED [None]
  - HEADACHE [None]
  - MUSCULOSKELETAL PAIN [None]
